FAERS Safety Report 5337499-2 (Version None)
Quarter: 2007Q2

REPORT INFORMATION
  Report Type: 
  Country: None (occurrence: None)
  Receive Date: 20070524
  Receipt Date: 20070521
  Transmission Date: 20071010
  Serious: Yes (Disabling, Other)
  Sender: FDA-Public Use
  Company Number: THQ2007A00407

PATIENT
  Age: 26 Year
  Sex: Female

DRUGS (2)
  1. LANSOPRAZOLE [Suspect]
     Indication: DYSPEPSIA
     Dosage: (15 MG); PER ORAL
     Route: 048
     Dates: start: 20061002, end: 20061226
  2. CERAZETTE (DESOGESTREL) [Concomitant]

REACTIONS (3)
  - AMENORRHOEA [None]
  - DEPRESSION [None]
  - IMPAIRED WORK ABILITY [None]
